FAERS Safety Report 8062940-4 (Version None)
Quarter: 2012Q1

REPORT INFORMATION
  Report Type: 
  Country: None (occurrence: None)
  Receive Date: 20120123
  Receipt Date: 20120123
  Transmission Date: 20120608
  Serious: Yes (Disabling)
  Sender: FDA-Public Use
  Company Number: None

PATIENT
  Age: 58 Year
  Sex: Female
  Weight: 65.77 kg

DRUGS (1)
  1. ARIMIDEX [Suspect]
     Indication: BREAST CANCER
     Dosage: 1 TABLET
     Route: 048
     Dates: start: 20080808, end: 20111030

REACTIONS (6)
  - PAIN IN EXTREMITY [None]
  - ARTHROPATHY [None]
  - BACK PAIN [None]
  - MYALGIA [None]
  - ARTHRALGIA [None]
  - FEAR [None]
